FAERS Safety Report 11058205 (Version 1)
Quarter: 2015Q2

REPORT INFORMATION
  Report Type: Spontaneous
  Country: US (occurrence: None)
  Receive Date: 20150422
  Receipt Date: 20150422
  Transmission Date: 20150821
  Serious: No
  Sender: FDA-Public Use
  Company Number: None

PATIENT
  Age: 58 Year
  Sex: Female

DRUGS (8)
  1. NEURONTIN [Concomitant]
     Active Substance: GABAPENTIN
  2. CIPROFLEX [Concomitant]
     Active Substance: CIPROFLOXACIN
  3. ADVIL [Concomitant]
     Active Substance: IBUPROFEN
  4. ATORVASTATIN [Concomitant]
     Active Substance: ATORVASTATIN
  5. MULTI VITAMINS [Concomitant]
  6. FLU SHOT [Concomitant]
     Active Substance: INFLUENZA VIRUS VACCINE
  7. GILENYA [Suspect]
     Active Substance: FINGOLIMOD HYDROCHLORIDE
     Indication: MULTIPLE SCLEROSIS
     Dosage: 0.5 MG, DAILY, ORAL
     Route: 048
     Dates: start: 20130221
  8. FISH OIL [Concomitant]
     Active Substance: FISH OIL

REACTIONS (1)
  - Sleep disorder [None]

NARRATIVE: CASE EVENT DATE: 20150421
